FAERS Safety Report 5708436-3 (Version None)
Quarter: 2008Q2

REPORT INFORMATION
  Report Type: 
  Country: None (occurrence: None)
  Receive Date: 20080417
  Receipt Date: 20080406
  Transmission Date: 20081010
  Serious: Yes (Life-Threatening, Other)
  Sender: FDA-Public Use
  Company Number: IL-PFIZER INC-2008002443

PATIENT
  Sex: Male

DRUGS (3)
  1. SU-011,248 [Suspect]
     Indication: METASTATIC RENAL CELL CARCINOMA
     Route: 048
     Dates: start: 20071204, end: 20071230
  2. L-THYROXIN [Concomitant]
     Indication: HYPOTHYROIDISM
     Route: 048
  3. ACETAMINOPHEN AND OXYCODONE HCL [Concomitant]
     Route: 048

REACTIONS (2)
  - ANAEMIA [None]
  - RENAL FAILURE [None]
